FAERS Safety Report 25706124 (Version 1)
Quarter: 2025Q3

REPORT INFORMATION
  Report Type: Spontaneous
  Country: US (occurrence: US)
  Receive Date: 20250820
  Receipt Date: 20250820
  Transmission Date: 20251021
  Serious: Yes (Hospitalization, Other)
  Sender: GLAND PHARMA LTD
  Company Number: US-GLANDPHARMA-US-2025GLNLIT01673

PATIENT
  Age: 44 Year
  Sex: Male

DRUGS (1)
  1. HEPARIN SODIUM [Suspect]
     Active Substance: HEPARIN SODIUM
     Indication: Pulmonary embolism
     Route: 065

REACTIONS (6)
  - Hepatic haematoma [Recovered/Resolved]
  - Haemoperitoneum [Recovered/Resolved]
  - Traumatic liver injury [Recovered/Resolved]
  - Haemoglobin decreased [Recovered/Resolved]
  - Hepatic haemorrhage [Recovered/Resolved]
  - Splenic haemorrhage [Recovered/Resolved]
